FAERS Safety Report 26061137 (Version 1)
Quarter: 2025Q4

REPORT INFORMATION
  Report Type: Spontaneous
  Country: US (occurrence: US)
  Receive Date: 20251118
  Receipt Date: 20251118
  Transmission Date: 20260118
  Serious: No
  Sender: REGENERON
  Company Number: US-REGENERON PHARMACEUTICALS, INC.-2025-166327

PATIENT
  Sex: Female

DRUGS (2)
  1. LYNOZYFIC [Suspect]
     Active Substance: LINVOSELTAMAB-GCPT
     Indication: Product used for unknown indication
     Dosage: 5 MG
     Route: 042
  2. LYNOZYFIC [Suspect]
     Active Substance: LINVOSELTAMAB-GCPT
     Dosage: 25 MG
     Route: 042

REACTIONS (2)
  - Disease progression [Unknown]
  - Drug ineffective [Unknown]
